FAERS Safety Report 5486594-6 (Version None)
Quarter: 2007Q4

REPORT INFORMATION
  Report Type: 
  Country: None (occurrence: None)
  Receive Date: 20071016
  Receipt Date: 20071009
  Transmission Date: 20080405
  Serious: Yes (Other)
  Sender: FDA-Public Use
  Company Number: GB-JNJFOC-20071002860

PATIENT
  Age: 64 Year
  Sex: Male

DRUGS (3)
  1. LOPERAMIDE HCL [Suspect]
     Indication: IRRITABLE BOWEL SYNDROME
     Route: 048
  2. ALLOPURINOL [Concomitant]
     Indication: GOUT
     Route: 048
  3. CODEINE PHOSPHATE [Concomitant]
     Indication: IRRITABLE BOWEL SYNDROME
     Route: 048

REACTIONS (1)
  - HALLUCINATION [None]
